FAERS Safety Report 8057978-7 (Version None)
Quarter: 2012Q1

REPORT INFORMATION
  Report Type: 
  Country: None (occurrence: None)
  Receive Date: 20120120
  Receipt Date: 20120116
  Transmission Date: 20120608
  Serious: No
  Sender: FDA-Public Use
  Company Number: US-PFIZER INC-2012012657

PATIENT
  Sex: Female
  Weight: 84.354 kg

DRUGS (4)
  1. RELPAX [Suspect]
     Indication: MIGRAINE
     Dosage: 40 MG, AS NEEDED
     Route: 048
     Dates: end: 20080101
  2. IMITREX [Suspect]
     Indication: MIGRAINE
     Dosage: 50 MG, AS NEEDED
     Route: 048
     Dates: start: 20110101
  3. PROPRANOLOL HYDROCHLORIDE [Suspect]
     Indication: MIGRAINE
     Dosage: 60 MG, DAILY
  4. IMITREX [Suspect]
     Dosage: 100 MG, AS NEEDED
     Route: 048

REACTIONS (2)
  - DRUG INEFFECTIVE [None]
  - MIGRAINE [None]
